FAERS Safety Report 16329668 (Version 4)
Quarter: 2021Q3

REPORT INFORMATION
  Report Type: Spontaneous
  Country: US (occurrence: US)
  Receive Date: 20190520
  Receipt Date: 20210730
  Transmission Date: 20211014
  Serious: No
  Sender: FDA-Public Use
  Company Number: US-BIOGEN-2019BI00738646

PATIENT
  Age: 53 Year
  Sex: Female

DRUGS (4)
  1. TECFIDERA [Suspect]
     Active Substance: DIMETHYL FUMARATE
     Route: 048
     Dates: start: 20140225
  2. CYMBALTA [Concomitant]
     Active Substance: DULOXETINE HYDROCHLORIDE
     Route: 065
  3. TECFIDERA [Suspect]
     Active Substance: DIMETHYL FUMARATE
     Route: 065
  4. TECFIDERA [Suspect]
     Active Substance: DIMETHYL FUMARATE
     Indication: MULTIPLE SCLEROSIS
     Dosage: STARTING DOSE
     Route: 048
     Dates: start: 20140218, end: 20140224

REACTIONS (13)
  - Hypothyroidism [Not Recovered/Not Resolved]
  - Fatigue [Unknown]
  - Cognitive disorder [Not Recovered/Not Resolved]
  - Migraine [Recovered/Resolved]
  - Body temperature increased [Unknown]
  - Neurological examination abnormal [Unknown]
  - Insomnia [Not Recovered/Not Resolved]
  - Illness [Unknown]
  - Anxiety [Unknown]
  - Flushing [Unknown]
  - Musculoskeletal stiffness [Not Recovered/Not Resolved]
  - Urticaria [Recovered/Resolved]
  - Confusional state [Unknown]

NARRATIVE: CASE EVENT DATE: 202006
